FAERS Safety Report 25211537 (Version 3)
Quarter: 2025Q2

REPORT INFORMATION
  Report Type: Spontaneous
  Country: US (occurrence: US)
  Receive Date: 20250418
  Receipt Date: 20250527
  Transmission Date: 20250716
  Serious: No
  Sender: ROCHE
  Company Number: US-ROCHE-10000258938

PATIENT
  Age: 41 Year
  Sex: Female
  Weight: 77.11 kg

DRUGS (3)
  1. XOLAIR PFS [Suspect]
     Active Substance: OMALIZUMAB
     Indication: Idiopathic urticaria
     Dosage: STRENGTH:150MG/ML
     Route: 058
     Dates: start: 202302
  2. XOLAIR PFS [Suspect]
     Active Substance: OMALIZUMAB
     Indication: Urticaria
     Dosage: 300MG IN THE FORM OF (2) 150MG PFS, ONGOING
     Route: 058
     Dates: start: 2022
  3. XOLAIR PFS [Suspect]
     Active Substance: OMALIZUMAB
     Route: 058
     Dates: start: 20250321

REACTIONS (5)
  - Injection site pain [Recovered/Resolved]
  - Needle issue [Unknown]
  - Urticaria [Recovered/Resolved]
  - Underdose [Unknown]
  - Product quality issue [Unknown]

NARRATIVE: CASE EVENT DATE: 20250201
